FAERS Safety Report 21946231 (Version 1)
Quarter: 2023Q1

REPORT INFORMATION
  Report Type: Spontaneous
  Country: US (occurrence: None)
  Receive Date: 20230202
  Receipt Date: 20230202
  Transmission Date: 20230418
  Serious: Yes (Hospitalization)
  Sender: FDA-Public Use
  Company Number: None

PATIENT
  Age: 80 Year
  Sex: Female
  Weight: 97.5 kg

DRUGS (12)
  1. TAXOL [Suspect]
     Active Substance: PACLITAXEL
     Indication: Invasive ductal breast carcinoma
     Dosage: OTHER FREQUENCY : WEEKLY;?
     Route: 041
     Dates: start: 20221202, end: 20230127
  2. MARGETUXIMAB [Concomitant]
     Active Substance: MARGETUXIMAB
     Dates: start: 20221202, end: 20230113
  3. PERTUZUMAB [Concomitant]
     Active Substance: PERTUZUMAB
     Dates: start: 20221202, end: 20230113
  4. LASIX [Concomitant]
     Active Substance: FUROSEMIDE
     Dates: start: 20230127
  5. CARVEDILOL [Concomitant]
     Active Substance: CARVEDILOL
     Dates: start: 20230125
  6. BUPROPION [Concomitant]
     Active Substance: BUPROPION
     Dates: start: 20221103
  7. HYDRALAZINE [Concomitant]
     Active Substance: HYDRALAZINE HYDROCHLORIDE
     Dates: start: 20221110
  8. HYDROCHLOROTHIAZIDE [Concomitant]
     Active Substance: HYDROCHLOROTHIAZIDE
     Dates: start: 20230125
  9. OLMESARTAN [Concomitant]
     Active Substance: OLMESARTAN
     Dates: start: 20230125
  10. ZOFRAN [Concomitant]
     Active Substance: ONDANSETRON HYDROCHLORIDE
     Dates: start: 20221202
  11. COMPAZINE [Concomitant]
     Active Substance: PROCHLORPERAZINE MALEATE
     Dates: start: 20221202
  12. ROSUVASTATIN [Concomitant]
     Active Substance: ROSUVASTATIN
     Dates: start: 20221103

REACTIONS (5)
  - Dyspnoea [None]
  - Hypoxia [None]
  - Hypervolaemia [None]
  - Pulmonary embolism [None]
  - Pneumonia [None]

NARRATIVE: CASE EVENT DATE: 20230127
